FAERS Safety Report 16956506 (Version 1)
Quarter: 2019Q4

REPORT INFORMATION
  Report Type: Spontaneous
  Country: US (occurrence: US)
  Receive Date: 20191023
  Receipt Date: 20191023
  Transmission Date: 20200122
  Serious: Yes (Life-Threatening, Disabling, Other)
  Sender: FDA-Public Use
  Company Number: None

PATIENT
  Age: 56 Year
  Sex: Female
  Weight: 70.65 kg

DRUGS (11)
  1. TOPIRAMATE 25 MG TABS [Suspect]
     Active Substance: TOPIRAMATE
     Indication: FIBROMYALGIA
     Dosage: ?          QUANTITY:1 TABLET(S);?
     Route: 048
     Dates: start: 20191018, end: 20191019
  2. LEVOTHYROXINE. [Concomitant]
     Active Substance: LEVOTHYROXINE
  3. LOW DOSE ASPIRIN [Concomitant]
     Active Substance: ASPIRIN
  4. VITAMIN D [Concomitant]
     Active Substance: VITAMIN D NOS
  5. CANNABIS [Concomitant]
     Active Substance: CANNABIS SATIVA SUBSP. INDICA TOP
  6. TOPIRAMATE 25 MG TABS [Suspect]
     Active Substance: TOPIRAMATE
     Indication: NEUROPATHY PERIPHERAL
     Dosage: ?          QUANTITY:1 TABLET(S);?
     Route: 048
     Dates: start: 20191018, end: 20191019
  7. ZINC. [Concomitant]
     Active Substance: ZINC
  8. TOPIRAMATE 25 MG TABS [Suspect]
     Active Substance: TOPIRAMATE
     Indication: DEPRESSION
     Dosage: ?          QUANTITY:1 TABLET(S);?
     Route: 048
     Dates: start: 20191018, end: 20191019
  9. AMLODIPINE [Concomitant]
     Active Substance: AMLODIPINE BESYLATE
  10. GABAPENTINE [Concomitant]
     Active Substance: GABAPENTIN
  11. DULOXETINE. [Concomitant]
     Active Substance: DULOXETINE

REACTIONS (10)
  - Feeling abnormal [None]
  - Screaming [None]
  - Autoscopy [None]
  - Fear of death [None]
  - Panic attack [None]
  - Burning sensation [None]
  - Pain [None]
  - Sensory disturbance [None]
  - Hallucination, tactile [None]
  - Moaning [None]

NARRATIVE: CASE EVENT DATE: 20191020
